FAERS Safety Report 12967721 (Version 2)
Quarter: 2016Q4

REPORT INFORMATION
  Report Type: Spontaneous
  Country: IQ (occurrence: IQ)
  Receive Date: 20161123
  Receipt Date: 20161201
  Transmission Date: 20170207
  Serious: Yes (Death, Hospitalization)
  Sender: FDA-Public Use
  Company Number: PHHY2016IQ160281

PATIENT
  Sex: Male

DRUGS (1)
  1. DESFERAL [Suspect]
     Active Substance: DEFEROXAMINE MESYLATE
     Indication: THALASSAEMIA BETA
     Dosage: 500 MG, BID
     Route: 042
     Dates: start: 20110105, end: 20160930

REACTIONS (4)
  - Multiple organ dysfunction syndrome [Fatal]
  - Cardiac failure [Fatal]
  - Hepatic failure [Fatal]
  - Cholecystitis infective [Unknown]

NARRATIVE: CASE EVENT DATE: 20161116
